FAERS Safety Report 14566116 (Version 2)
Quarter: 2018Q4

REPORT INFORMATION
  Report Type: Spontaneous
  Country: US (occurrence: US)
  Receive Date: 20180223
  Receipt Date: 20181204
  Transmission Date: 20190204
  Serious: No
  Sender: FDA-Public Use
  Company Number: US-PFIZER INC-2018076797

PATIENT
  Age: 66 Year
  Sex: Male

DRUGS (4)
  1. DURAGESIC [Suspect]
     Active Substance: FENTANYL
     Dosage: UNK
  2. RANEXA [Suspect]
     Active Substance: RANOLAZINE
     Dosage: UNK
  3. LIPITOR [Suspect]
     Active Substance: ATORVASTATIN CALCIUM
     Dosage: UNK
  4. TRENTAL [Suspect]
     Active Substance: PENTOXIFYLLINE
     Dosage: UNK

REACTIONS (1)
  - Drug hypersensitivity [Unknown]
